FAERS Safety Report 14937614 (Version 1)
Quarter: 2018Q2

REPORT INFORMATION
  Report Type: Spontaneous
  Country: FR (occurrence: FR)
  Receive Date: 20180525
  Receipt Date: 20180525
  Transmission Date: 20180711
  Serious: Yes (Hospitalization)
  Sender: FDA-Public Use
  Company Number: PHHY2018FR005603

PATIENT
  Age: 81 Year
  Sex: Female

DRUGS (3)
  1. CANDESARTAN SANDOZ [Suspect]
     Active Substance: CANDESARTAN
     Indication: HYPERTENSION
     Dosage: 1 DF, UNK
     Route: 048
  2. TERALITHE [Interacting]
     Active Substance: LITHIUM CARBONATE
     Indication: BIPOLAR DISORDER
     Dosage: 625 MG, UNK
     Route: 048
  3. FUROSEMIDE ARROW [Interacting]
     Active Substance: FUROSEMIDE
     Indication: CARDIAC FAILURE
     Dosage: 1 DF, UNK
     Route: 048

REACTIONS (7)
  - Drug interaction [Recovered/Resolved]
  - Somnolence [Recovered/Resolved]
  - Conduction disorder [Recovered/Resolved]
  - Aphasia [Recovered/Resolved]
  - Medication error [Recovered/Resolved]
  - Prescribed overdose [Recovered/Resolved]
  - Acute kidney injury [Recovered/Resolved]

NARRATIVE: CASE EVENT DATE: 20180123
